FAERS Safety Report 7857928-X (Version None)
Quarter: 2011Q4

REPORT INFORMATION
  Report Type: 
  Country: None (occurrence: None)
  Receive Date: 20111027
  Receipt Date: 20110214
  Transmission Date: 20120403
  Serious: No
  Sender: FDA-Public Use
  Company Number: US-BAYER-2011-015030

PATIENT
  Sex: Female
  Weight: 141 kg

DRUGS (6)
  1. HYDROCHLOROTHIAZIDE [Concomitant]
     Dosage: UNK
     Dates: start: 20100101
  2. ALEVE (CAPLET) [Suspect]
     Indication: ANALGESIC THERAPY
     Route: 048
  3. ENALAPRIL MALEATE [Concomitant]
  4. SIMVASTATIN [Concomitant]
  5. DIGOXIN [Concomitant]
  6. SPIRIVA [Concomitant]

REACTIONS (3)
  - RASH [None]
  - RASH PAPULAR [None]
  - LIP DRY [None]
